FAERS Safety Report 12259970 (Version 1)
Quarter: 2016Q2

REPORT INFORMATION
  Report Type: Spontaneous
  Country: US (occurrence: US)
  Receive Date: 20160412
  Receipt Date: 20160412
  Transmission Date: 20160815
  Serious: No
  Sender: FDA-Public Use
  Company Number: US-SA-2015SA160311

PATIENT
  Age: 77 Year
  Sex: Male

DRUGS (3)
  1. MUCINEX [Suspect]
     Active Substance: GUAIFENESIN
     Route: 065
  2. ALLEGRA [Suspect]
     Active Substance: FEXOFENADINE HYDROCHLORIDE
     Dosage: THE SALINE RINSE AS NEEDED
     Route: 065
  3. NASACORT [Suspect]
     Active Substance: TRIAMCINOLONE ACETONIDE
     Dosage: FREQUENCY: ONCE OR TWICE PER DAY IN EACH NOSTRIL
     Route: 065

REACTIONS (1)
  - Hypertension [Unknown]
